FAERS Safety Report 4586504-X (Version None)
Quarter: 2005Q1

REPORT INFORMATION
  Report Type: 
  Country: None (occurrence: None)
  Receive Date: 20050214
  Receipt Date: 20050131
  Transmission Date: 20050727
  Serious: Yes (Other)
  Sender: FDA-Public Use
  Company Number: 2004239669JP

PATIENT
  Age: 45 Year
  Sex: Male

DRUGS (3)
  1. HYDROCORTISONE [Suspect]
     Indication: HORMONE REPLACEMENT THERAPY
     Dosage: 300 MG (300 MG, 1 IN 1 D), INTRAVENOUS
     Route: 042
     Dates: start: 20030301
  2. LYSODREN [Concomitant]
  3. ETOPOSIDE [Concomitant]

REACTIONS (1)
  - METASTASES TO LIVER [None]
